FAERS Safety Report 6112851-6 (Version None)
Quarter: 2009Q1

REPORT INFORMATION
  Report Type: 
  Country: None (occurrence: None)
  Receive Date: 20090312
  Receipt Date: 20090304
  Transmission Date: 20090719
  Serious: Yes (Hospitalization)
  Sender: FDA-Public Use
  Company Number: JP-ASTRAZENECA-2009AP01279

PATIENT
  Age: 67 Year
  Sex: Male

DRUGS (4)
  1. XYLOCAINE [Suspect]
     Indication: EPIDURAL ANAESTHESIA
     Route: 008
     Dates: start: 20090205, end: 20090205
  2. SEFMAZON [Concomitant]
     Indication: INFECTION PROPHYLAXIS
     Route: 041
     Dates: start: 20090205, end: 20090205
  3. MYSLEE [Concomitant]
     Dosage: DOSE UNKNOWN
     Route: 048
  4. URIEF [Concomitant]
     Route: 048

REACTIONS (1)
  - DRUG TOXICITY [None]
